FAERS Safety Report 6076589-6 (Version None)
Quarter: 2009Q1

REPORT INFORMATION
  Report Type: 
  Country: None (occurrence: None)
  Receive Date: 20090212
  Receipt Date: 20090212
  Transmission Date: 20090719
  Serious: Yes (Death)
  Sender: FDA-Public Use
  Company Number: None

PATIENT
  Age: 67 Year

DRUGS (2)
  1. ETOPOSIDE [Suspect]
     Dosage: 194 MG EVERY DAY IM
     Route: 030
     Dates: start: 20081006, end: 20081008
  2. CARBOPLATIN [Suspect]
     Dosage: 725 MG ONCE IV
     Route: 042
     Dates: start: 20081006, end: 20081006

REACTIONS (4)
  - FEBRILE NEUTROPENIA [None]
  - LEUKOPENIA [None]
  - METASTASIS [None]
  - PNEUMONIA [None]
